FAERS Safety Report 10314207 (Version 1)
Quarter: 2014Q3

REPORT INFORMATION
  Report Type: Spontaneous
  Country: ES (occurrence: ES)
  Receive Date: 20140718
  Receipt Date: 20140718
  Transmission Date: 20150326
  Serious: Yes (Hospitalization, Other)
  Sender: FDA-Public Use
  Company Number: PHHY2014ES086185

PATIENT
  Age: 25 Year
  Sex: Male

DRUGS (2)
  1. IBUPROFEN. [Suspect]
     Active Substance: IBUPROFEN
     Indication: HEADACHE
     Dosage: 2 DF, UNK
  2. BENZODIAZEPINES [Suspect]
     Active Substance: BENZODIAZEPINE

REACTIONS (3)
  - Renal failure acute [Unknown]
  - Suicide attempt [Unknown]
  - Flank pain [Recovered/Resolved]
